FAERS Safety Report 7134791-6 (Version None)
Quarter: 2010Q4

REPORT INFORMATION
  Report Type: 
  Country: None (occurrence: None)
  Receive Date: 20101203
  Receipt Date: 20101124
  Transmission Date: 20110411
  Serious: Yes (Death, Hospitalization)
  Sender: FDA-Public Use
  Company Number: US-ROCHE-745337

PATIENT
  Age: 62 Year
  Sex: Female

DRUGS (22)
  1. BEVACIZUMAB [Suspect]
     Route: 042
     Dates: start: 20090204, end: 20090531
  2. TOPOTECAN [Suspect]
     Dosage: FIRST TWO CYCLES
     Route: 048
     Dates: start: 20090204
  3. TOPOTECAN [Suspect]
     Dosage: FOR 5 CONSECUTIVE DAYS ON DAYS 1-5.
     Route: 048
     Dates: end: 20090531
  4. INSULIN ASPART [Concomitant]
  5. INSULIN GLARGINE [Concomitant]
  6. POTASSIUM NOS [Concomitant]
  7. PROMETHAZINE [Concomitant]
  8. CLONIDINE [Concomitant]
  9. LISINOPRIL [Concomitant]
  10. CYCLOBENZAPRINE HCL [Concomitant]
  11. CITALOPRAM HYDROBROMIDE [Concomitant]
  12. LOPERAMIDE [Concomitant]
  13. CHERATUSSIN AC [Concomitant]
  14. SENNA [Concomitant]
  15. GRANISETRON HCL [Concomitant]
  16. PARACETAMOL [Concomitant]
  17. HYDROCODONE BITARTRATE [Concomitant]
  18. PROCHLORPERAZINE [Concomitant]
  19. INSULIN [Concomitant]
  20. MORPHINE [Concomitant]
  21. ONDANSETRON [Concomitant]
  22. ZOLPIDEM TARTRATE [Concomitant]

REACTIONS (18)
  - ABDOMINAL PAIN [None]
  - ALOPECIA [None]
  - ANXIETY [None]
  - ASTHENIA [None]
  - BACK PAIN [None]
  - CHEST PAIN [None]
  - COUGH [None]
  - DEATH [None]
  - DIABETIC KETOACIDOSIS [None]
  - DIARRHOEA [None]
  - DYSPEPSIA [None]
  - FATIGUE [None]
  - HEADACHE [None]
  - HYPERHIDROSIS [None]
  - HYPERTENSION [None]
  - INSOMNIA [None]
  - NAUSEA [None]
  - PAIN [None]
